FAERS Safety Report 4921547-5 (Version None)
Quarter: 2006Q1

REPORT INFORMATION
  Report Type: 
  Country: None (occurrence: None)
  Receive Date: 20060222
  Receipt Date: 20060222
  Transmission Date: 20060701
  Serious: Yes (Hospitalization)
  Sender: FDA-Public Use
  Company Number: None

PATIENT
  Age: 16 Year
  Sex: Male

DRUGS (2)
  1. RISPERDAL [Suspect]
     Indication: BIPOLAR DISORDER
     Dosage: 3 MG QAM + 5 MG AT BEDTIME
  2. KLONOPIN [Suspect]
     Indication: ANXIETY

REACTIONS (2)
  - BLOOD PRESSURE DECREASED [None]
  - MULTIPLE DRUG OVERDOSE INTENTIONAL [None]
